FAERS Safety Report 7093453-4 (Version None)
Quarter: 2010Q4

REPORT INFORMATION
  Report Type: 
  Country: None (occurrence: None)
  Receive Date: 20101110
  Receipt Date: 20101101
  Transmission Date: 20110411
  Serious: Yes (Hospitalization, Other)
  Sender: FDA-Public Use
  Company Number: DE-AMGEN GMBH-QUU443669

PATIENT

DRUGS (5)
  1. PANITUMUMAB [Suspect]
     Indication: COLORECTAL CANCER
     Dosage: 342 MG, Q2WK
     Route: 042
     Dates: start: 20100820, end: 20100916
  2. TIOTROPIUM BROMIDE [Concomitant]
     Dosage: UNK UNK, QD
     Route: 055
  3. DIMETICONE [Concomitant]
     Dosage: UNK UNK, QD
     Route: 048
  4. BUDESONIDE [Concomitant]
     Dosage: UNK UNK, QD
     Route: 055
  5. FORMOTEROL FUMARATE [Concomitant]
     Dosage: UNK UNK, QD
     Route: 055

REACTIONS (3)
  - ASCITES [None]
  - LIVER FUNCTION TEST [None]
  - MALIGNANT NEOPLASM PROGRESSION [None]
